FAERS Safety Report 18708168 (Version 3)
Quarter: 2021Q1

REPORT INFORMATION
  Report Type: Spontaneous
  Country: JP (occurrence: JP)
  Receive Date: 20210106
  Receipt Date: 20210318
  Transmission Date: 20210419
  Serious: Yes (Hospitalization, Other)
  Sender: FDA-Public Use
  Company Number: JP-ALLERGAN-2046583US

PATIENT
  Sex: Male

DRUGS (7)
  1. BOTOX [Suspect]
     Active Substance: ONABOTULINUMTOXINA
     Dosage: 25 UNITS, SINGLE
     Route: 030
     Dates: start: 20200403, end: 20200403
  2. BOTOX [Suspect]
     Active Substance: ONABOTULINUMTOXINA
     Indication: MUSCLE SPASTICITY
     Dosage: 100 UNITS, SINGLE
     Route: 030
     Dates: start: 20200403, end: 20200403
  3. BOTOX [Suspect]
     Active Substance: ONABOTULINUMTOXINA
     Dosage: 75 UNITS, SINGLE
     Route: 030
     Dates: start: 20200403, end: 20200403
  4. BOTOX [Suspect]
     Active Substance: ONABOTULINUMTOXINA
     Dosage: 50 UNITS, SINGLE
     Route: 030
     Dates: start: 20200403, end: 20200403
  5. BOTOX [Suspect]
     Active Substance: ONABOTULINUMTOXINA
     Indication: MUSCLE SPASTICITY
     Dosage: 50 UNITS, SINGLE
     Route: 030
     Dates: start: 20200403, end: 20200403
  6. BOTOX [Suspect]
     Active Substance: ONABOTULINUMTOXINA
     Dosage: 50 UNITS, SINGLE
     Route: 030
     Dates: start: 20200403, end: 20200403
  7. BOTOX [Suspect]
     Active Substance: ONABOTULINUMTOXINA
     Dosage: 50 UNITS, SINGLE
     Route: 030
     Dates: start: 20200403, end: 20200403

REACTIONS (4)
  - Myasthenia gravis [Recovering/Resolving]
  - Binocular eye movement disorder [Recovering/Resolving]
  - Diplopia [Recovering/Resolving]
  - Eyelid ptosis [Recovering/Resolving]

NARRATIVE: CASE EVENT DATE: 202005
